FAERS Safety Report 8930162 (Version 1)
Quarter: 2012Q4

REPORT INFORMATION
  Report Type: Report from Study
  Country: US (occurrence: US)
  Receive Date: 20121128
  Receipt Date: 20121128
  Transmission Date: 20130627
  Serious: Yes (Hospitalization, Other)
  Sender: FDA-Public Use
  Company Number: US-TEVA-372343USA

PATIENT
  Age: 51 Year
  Sex: Male

DRUGS (22)
  1. BLEOMYCIN [Suspect]
     Indication: HODGKIN^S DISEASE
  2. VINBLASTINE [Suspect]
     Indication: HODGKIN^S DISEASE
     Dosage: DAY 1 ,DAY 15 OF 28 DAY CYCLE (6 mg/m2)
     Dates: start: 20110511
  3. DACARBAZINE [Suspect]
     Indication: HODGKIN^S DISEASE
     Dosage: DAY 1 AND DAY 15 OF 28 DAY CYCLE (375 mg/m2)
     Dates: start: 20110511
  4. ADRIAMYCIN [Suspect]
     Dosage: DAY 1 AND DAY 15 OF 28 DAY CYCLE (25 mg/kg)
     Dates: start: 20110511
  5. BEVACIZUMAB [Suspect]
     Dosage: DAY 1 AND DAY 15 OF 28 DAY CYCLE (10 mg/kg,1 in 15 D)
     Route: 042
     Dates: start: 20110511
  6. ASPIRIN [Concomitant]
     Route: 048
  7. BENEFIBER [Concomitant]
     Dosage: 2 TBSP
     Route: 048
  8. CHOLECALCIFEROL [Concomitant]
     Route: 048
  9. COMPAZINE [Concomitant]
     Indication: NAUSEA
     Dosage: Q6-8H PRN
     Route: 048
  10. DIOVAN [Concomitant]
     Route: 048
  11. ERGOCALCIFEROL [Concomitant]
     Dosage: 20000 UNITS-400 UNIT TABLET TAKE 50
     Route: 048
  12. FERROUS SULPHATE [Concomitant]
     Route: 048
  13. FLONASE [Concomitant]
     Route: 045
  14. LORAZEPAM [Concomitant]
     Indication: NAUSEA
     Dosage: PRN
     Route: 048
  15. MICONAZOLE [Concomitant]
     Route: 061
  16. NAPROXEN [Concomitant]
     Dosage: 750 Milligram Daily;
     Route: 048
  17. NYSTATIN [Concomitant]
     Dosage: 20 ml Daily;
     Route: 048
  18. ACETAMINOPHEN W/OXYCODONE [Concomitant]
     Indication: PAIN
     Dosage: 1-2 TABLET AS NECESSARY
     Route: 048
  19. PRILOSEC [Concomitant]
     Route: 048
  20. PROVENTIL [Concomitant]
     Indication: ASTHMA
     Dosage: AS NECESSARY
     Route: 055
  21. ZOCOR [Concomitant]
     Dosage: QPM
     Route: 048
  22. AMARYL [Concomitant]
     Route: 048

REACTIONS (1)
  - Febrile neutropenia [Recovered/Resolved]
